FAERS Safety Report 4301995-7 (Version None)
Quarter: 2004Q1

REPORT INFORMATION
  Report Type: 
  Country: None (occurrence: None)
  Receive Date: 20040223
  Receipt Date: 20031017
  Transmission Date: 20041129
  Serious: Yes (Hospitalization, Other)
  Sender: FDA-Public Use
  Company Number: BW-BRISTOL-MYERS SQUIBB COMPANY-12427878

PATIENT
  Sex: Female

DRUGS (2)
  1. EFAVIRENZ [Suspect]
     Indication: HIV INFECTION
     Dosage: TEMPORARILY WITH-HELD
  2. COMBIVIR [Suspect]
     Indication: HIV INFECTION
     Dosage: TEMPORARILY WITH-HELD

REACTIONS (6)
  - ANAEMIA [None]
  - ASTHENIA [None]
  - BRONCHITIS [None]
  - HYPOTENSION [None]
  - NEUTROPENIA [None]
  - TACHYCARDIA [None]
